FAERS Safety Report 17311491 (Version 1)
Quarter: 2020Q1

REPORT INFORMATION
  Report Type: Spontaneous
  Country: US (occurrence: US)
  Receive Date: 20200123
  Receipt Date: 20200123
  Transmission Date: 20200409
  Serious: No
  Sender: FDA-Public Use
  Company Number: US-ROCHE-2232822

PATIENT
  Age: 60 Year
  Sex: Male

DRUGS (7)
  1. PREDNISONE. [Concomitant]
     Active Substance: PREDNISONE
     Indication: GRANULOMATOSIS WITH POLYANGIITIS
     Route: 048
  2. DIFLUPREDNATE [Concomitant]
     Active Substance: DIFLUPREDNATE
     Route: 047
  3. TIMOLOL. [Concomitant]
     Active Substance: TIMOLOL
     Route: 047
  4. RITUXIMAB. [Suspect]
     Active Substance: RITUXIMAB
     Dosage: 5 MONTHS AFTER SECOND REGIMEN
     Route: 042
  5. RITUXIMAB. [Suspect]
     Active Substance: RITUXIMAB
     Indication: SCLERITIS
     Dosage: 5 MONTHS AFTER INDUCTION TREATMENT
     Route: 042
  6. PREDNISONE. [Concomitant]
     Active Substance: PREDNISONE
     Indication: SCLERITIS
     Dosage: TAPERED DOSE
     Route: 048
  7. RITUXIMAB. [Suspect]
     Active Substance: RITUXIMAB
     Indication: GRANULOMATOSIS WITH POLYANGIITIS
     Route: 042

REACTIONS (4)
  - Fatigue [Unknown]
  - Arthralgia [Unknown]
  - Dry eye [Unknown]
  - Weight decreased [Unknown]
